FAERS Safety Report 5987194-1 (Version None)
Quarter: 2008Q4

REPORT INFORMATION
  Report Type: 
  Country: None (occurrence: None)
  Receive Date: 20081209
  Receipt Date: 20081201
  Transmission Date: 20090506
  Serious: Yes (Hospitalization)
  Sender: FDA-Public Use
  Company Number: BE-ELI_LILLY_AND_COMPANY-BE200809006199

PATIENT
  Sex: Female

DRUGS (15)
  1. BYETTA [Suspect]
     Indication: GLYCOSYLATED HAEMOGLOBIN INCREASED
     Dosage: 5 UG, UNKNOWN
     Route: 065
     Dates: start: 20080803, end: 20080101
  2. BYETTA [Suspect]
     Dosage: 10 UG, UNKNOWN
     Route: 065
     Dates: start: 20080101, end: 20080925
  3. BYETTA [Suspect]
     Dosage: UNK, UNKNOWN
     Route: 065
     Dates: start: 20080101, end: 20080101
  4. BURINEX [Concomitant]
     Dosage: 2.5 MG (HALF A 5MG TABLET), DAILY (1/D)
     Route: 048
  5. CORUNO [Concomitant]
     Dosage: 16 MG, DAILY (1/D)
     Route: 048
  6. SIPRALEXA [Concomitant]
     Dosage: 10 MG, DAILY (1/D)
     Route: 048
  7. GLUCOPHAGE [Concomitant]
     Dosage: 850 MG, DAILY (1/D)
     Route: 048
  8. GLURENORM [Concomitant]
     Dosage: 30 MG, 3/D
     Route: 065
  9. ALDACTONE [Concomitant]
     Dosage: 25 MG, DAILY (1/D)
     Route: 048
  10. SELECTOL [Concomitant]
     Dosage: 200 MG, DAILY (1/D)
     Route: 048
  11. PLAVIX [Concomitant]
     Dosage: 75 MG, DAILY (1/D)
     Route: 048
  12. SIMVASTATIN [Concomitant]
     Dosage: 20 MG, DAILY (1/D)
     Route: 048
  13. CARDIOASPIRINE [Concomitant]
     Dosage: 100 MG, DAILY (1/D)
     Route: 048
  14. XANAX [Concomitant]
     Dosage: 0.5 MG, EACH EVENING
     Route: 048
  15. COZAAR [Concomitant]
     Dosage: 50 MG (HALF OF 100MG TABLET), 2/D
     Route: 048

REACTIONS (3)
  - DIZZINESS [None]
  - HYPERHIDROSIS [None]
  - MALAISE [None]
